FAERS Safety Report 18466596 (Version 1)
Quarter: 2020Q4

REPORT INFORMATION
  Report Type: Spontaneous
  Country: JP (occurrence: JP)
  Receive Date: 20201105
  Receipt Date: 20201105
  Transmission Date: 20210114
  Serious: Yes (Death, Hospitalization, Other)
  Sender: FDA-Public Use
  Company Number: JP-TAKEDA-JP202009600

PATIENT
  Age: 72 Year
  Sex: Female

DRUGS (10)
  1. AMLODIPINE BESILATE [Concomitant]
     Active Substance: AMLODIPINE BESYLATE
     Indication: PRODUCT USED FOR UNKNOWN INDICATION
     Dosage: 10 MILLIGRAM/DAY
     Route: 065
  2. SODIUM CHLORIDE. [Concomitant]
     Active Substance: SODIUM CHLORIDE
     Indication: PRODUCT USED FOR UNKNOWN INDICATION
     Dosage: 6 GRAM/DAY
     Route: 065
  3. AGRYLIN [Suspect]
     Active Substance: ANAGRELIDE HYDROCHLORIDE
     Indication: ESSENTIAL THROMBOCYTHAEMIA
     Dosage: 1.5 MILLIGRAM / DAY (1 MILLIGRAM IN THE MORNING, 0.5 MILLIGRAM IN THE EVENING)
     Route: 048
     Dates: end: 20200813
  4. AGRYLIN [Suspect]
     Active Substance: ANAGRELIDE HYDROCHLORIDE
     Dosage: 0.5 MILLIGRAM, QD
     Route: 048
     Dates: start: 20200814, end: 20200816
  5. PREDNISOLONE. [Concomitant]
     Active Substance: PREDNISOLONE
     Indication: PRODUCT USED FOR UNKNOWN INDICATION
     Dosage: 5 MILLIGRAM, 1X/DAY:QD (IN THE MORNING)
     Route: 065
  6. IMIDAPRIL HYDROCHLORIDE [Concomitant]
     Active Substance: IMIDAPRIL HYDROCHLORIDE
     Indication: PRODUCT USED FOR UNKNOWN INDICATION
     Dosage: 5 MILLIGRAM, 1X/DAY:QD (IN THE EVENING)
     Route: 065
  7. TAKECAB [Concomitant]
     Active Substance: VONOPRAZAN FUMARATE
     Indication: PRODUCT USED FOR UNKNOWN INDICATION
     Dosage: 10 MILLIGRAM, 1X/DAY:QD
     Route: 065
  8. BIO-THREE [Concomitant]
     Active Substance: HERBALS
     Indication: PRODUCT USED FOR UNKNOWN INDICATION
     Dosage: 3 DOSAGE FORM/DAY
     Route: 065
  9. PHENOBAL [PHENOBARBITAL] [Concomitant]
     Active Substance: PHENOBARBITAL
     Indication: PRODUCT USED FOR UNKNOWN INDICATION
     Dosage: 0.9 GRAM, 1X/DAY:QD (BEFORE SLEEP)
     Route: 065
  10. POTASSIUM GLUCONATE [Concomitant]
     Active Substance: POTASSIUM GLUCONATE
     Indication: PRODUCT USED FOR UNKNOWN INDICATION
     Dosage: 2 GRAM, 3X/DAY:TID
     Route: 065

REACTIONS (4)
  - Pneumonia aspiration [Fatal]
  - Vomiting [Fatal]
  - Hospitalisation [Unknown]
  - General physical health deterioration [Fatal]

NARRATIVE: CASE EVENT DATE: 20200305
